FAERS Safety Report 7510123-6 (Version None)
Quarter: 2011Q2

REPORT INFORMATION
  Report Type: 
  Country: None (occurrence: None)
  Receive Date: 20110527
  Receipt Date: 20110519
  Transmission Date: 20111010
  Serious: Yes (Hospitalization, Other)
  Sender: FDA-Public Use
  Company Number: CH-B.I. PHARMACEUTICALS,INC./RIDGEFIELD-2011-AP-00282SI

PATIENT
  Age: 60 Year
  Sex: Female
  Weight: 84 kg

DRUGS (11)
  1. LITHIUM CARBONATE [Suspect]
     Dosage: 1320 MG
     Route: 048
     Dates: start: 20110215, end: 20110414
  2. DIAMICRON [Concomitant]
     Indication: TYPE 2 DIABETES MELLITUS
     Route: 048
     Dates: end: 20110504
  3. PRAMIPEXOLE DIHYCHLLORIDE [Suspect]
     Indication: RESTLESS LEGS SYNDROME
     Dosage: 0.125 MG
     Route: 048
     Dates: start: 20101228, end: 20110504
  4. ATACAND HCT [Concomitant]
     Indication: ESSENTIAL HYPERTENSION
     Dosage: 16 MG
     Route: 048
  5. PAROXETINE HCL [Concomitant]
     Indication: AFFECTIVE DISORDER
     Route: 048
     Dates: end: 20110504
  6. SEROQUEL XR [Suspect]
     Dosage: 100 MG
     Route: 048
     Dates: start: 20110430, end: 20110504
  7. LITHIUM CARBONATE [Suspect]
     Dosage: 990 MG
     Route: 048
     Dates: start: 20110128, end: 20110214
  8. BILOL [Concomitant]
     Indication: ESSENTIAL HYPERTENSION
     Route: 048
  9. LITHIUM CARBONATE [Suspect]
     Indication: MANIA
     Dosage: 660 MG
     Route: 048
     Dates: start: 20110107, end: 20110127
  10. LITHIUM CARBONATE [Suspect]
     Dosage: 660 MG
     Route: 048
     Dates: start: 20110420, end: 20110430
  11. SEROQUEL XR [Suspect]
     Indication: MANIA
     Dosage: 300 MG
     Route: 048
     Dates: start: 20101201, end: 20110107

REACTIONS (10)
  - GAIT DISTURBANCE [None]
  - BUNDLE BRANCH BLOCK [None]
  - RENAL FAILURE ACUTE [None]
  - CONFUSIONAL STATE [None]
  - DRUG LEVEL INCREASED [None]
  - TREMOR [None]
  - ACCIDENTAL OVERDOSE [None]
  - DYSKINESIA [None]
  - ELECTROCARDIOGRAM QT INTERVAL ABNORMAL [None]
  - HYPERHIDROSIS [None]
